FAERS Safety Report 10201342 (Version 1)
Quarter: 2014Q2

REPORT INFORMATION
  Report Type: Spontaneous
  Country: GB (occurrence: GB)
  Receive Date: 20140528
  Receipt Date: 20140528
  Transmission Date: 20141212
  Serious: Yes (Other)
  Sender: FDA-Public Use
  Company Number: GB-ROXANE LABORATORIES, INC.-2014-RO-00801RO

PATIENT
  Age: 30 Year
  Sex: Male

DRUGS (1)
  1. CITALOPRAM HYDROBROMIDE [Suspect]
     Indication: DEPRESSION
     Dosage: 40 MG
     Route: 065

REACTIONS (8)
  - Sperm concentration decreased [Recovered/Resolved]
  - Spermatozoa progressive motility decreased [Recovered/Resolved]
  - Spermatozoa morphology abnormal [Recovered/Resolved]
  - Dizziness [Unknown]
  - Paraesthesia [Unknown]
  - Sleep disorder [Unknown]
  - Anxiety [Unknown]
  - Insomnia [Unknown]
